FAERS Safety Report 9921380 (Version 1)
Quarter: 2014Q1

REPORT INFORMATION
  Report Type: Spontaneous
  Country: US (occurrence: None)
  Receive Date: 20140221
  Receipt Date: 20140221
  Transmission Date: 20141002
  Serious: No
  Sender: FDA-Public Use
  Company Number: None

PATIENT
  Age: 71 Year
  Sex: Male
  Weight: 97.7 kg

DRUGS (1)
  1. ETANERCEPT [Suspect]
     Dates: start: 20131204, end: 20131216

REACTIONS (2)
  - Flushing [None]
  - Dyspnoea [None]
